FAERS Safety Report 4871912-X (Version None)
Quarter: 2006Q1

REPORT INFORMATION
  Report Type: 
  Country: None (occurrence: None)
  Receive Date: 20060104
  Receipt Date: 20051226
  Transmission Date: 20060701
  Serious: Yes (Other)
  Sender: FDA-Public Use
  Company Number: PHBS2005CL19011

PATIENT
  Sex: Female

DRUGS (1)
  1. STALEVO 100 [Suspect]
     Route: 048

REACTIONS (1)
  - BRONCHIAL OBSTRUCTION [None]
